FAERS Safety Report 22324780 (Version 1)
Quarter: 2023Q2

REPORT INFORMATION
  Report Type: Spontaneous
  Country: US (occurrence: US)
  Receive Date: 20230516
  Receipt Date: 20230516
  Transmission Date: 20230722
  Serious: Yes (Death, Other)
  Sender: FDA-Public Use
  Company Number: US-BIOVITRUM-2023-US-010851

PATIENT
  Sex: Male

DRUGS (1)
  1. DOPTELET [Suspect]
     Active Substance: AVATROMBOPAG MALEATE
     Indication: Cytopenia
     Dosage: DAILY
     Route: 048
     Dates: start: 20230222, end: 20230515

REACTIONS (2)
  - Respiratory failure [Fatal]
  - Embolic stroke [Fatal]
